FAERS Safety Report 7623443-1 (Version None)
Quarter: 2011Q3

REPORT INFORMATION
  Report Type: 
  Country: None (occurrence: None)
  Receive Date: 20110720
  Receipt Date: 20110711
  Transmission Date: 20111222
  Serious: Yes (Hospitalization)
  Sender: FDA-Public Use
  Company Number: PHHY2011IT61638

PATIENT
  Sex: Male

DRUGS (2)
  1. CARVEDILOL [Suspect]
     Dosage: UNK
  2. ENALAPRIL MALEATE [Suspect]
     Dosage: UNK

REACTIONS (2)
  - SOPOR [None]
  - HYPOTENSION [None]
